FAERS Safety Report 19676344 (Version 1)
Quarter: 2021Q3

REPORT INFORMATION
  Report Type: Spontaneous
  Country: DE (occurrence: DE)
  Receive Date: 20210809
  Receipt Date: 20210809
  Transmission Date: 20211014
  Serious: Yes (Hospitalization)
  Sender: FDA-Public Use
  Company Number: NVSC2021DE174782

PATIENT
  Age: 68 Year
  Sex: Female

DRUGS (2)
  1. RAMIPRIL. [Concomitant]
     Active Substance: RAMIPRIL
     Indication: PRODUCT USED FOR UNKNOWN INDICATION
     Dosage: 5 MG, QD (1?0?0?0, TABLETTEN)
     Route: 048
  2. ACICLOVIR [Suspect]
     Active Substance: ACYCLOVIR
     Indication: HERPES ZOSTER
     Dosage: UNK (800 MG, FUNF MAL TAGLICH, TABLETTEN)
     Route: 048
     Dates: start: 20210414, end: 20210421

REACTIONS (5)
  - Sleep disorder [Recovering/Resolving]
  - Disturbance in attention [Unknown]
  - Parosmia [Recovering/Resolving]
  - Taste disorder [Recovering/Resolving]
  - Paraesthesia [Recovering/Resolving]

NARRATIVE: CASE EVENT DATE: 20210414
